FAERS Safety Report 26058956 (Version 1)
Quarter: 2025Q4

REPORT INFORMATION
  Report Type: Spontaneous
  Country: US (occurrence: US)
  Receive Date: 20251118
  Receipt Date: 20251118
  Transmission Date: 20260118
  Serious: No
  Sender: COLLEGIUM PHARMACEUTICAL
  Company Number: US-COLLEGIUM PHARMACEUTICAL, INC.-20251002723

PATIENT

DRUGS (1)
  1. BELBUCA [Suspect]
     Active Substance: BUPRENORPHINE HYDROCHLORIDE
     Indication: Pain
     Dosage: 150 MICROGRAM, BID (EVERY 12 HOURS)
     Route: 002
     Dates: start: 20251028

REACTIONS (3)
  - Drug ineffective [Not Recovered/Not Resolved]
  - Product storage error [Recovered/Resolved]
  - Product adhesion issue [None]

NARRATIVE: CASE EVENT DATE: 20251001
